FAERS Safety Report 8970152 (Version 1)
Quarter: 2012Q4

REPORT INFORMATION
  Report Type: 
  Country: CN (occurrence: CN)
  Receive Date: 20121217
  Receipt Date: 20121217
  Transmission Date: 20130627
  Serious: Yes (Hospitalization, Other)
  Sender: FDA-Public Use
  Company Number: CN-ABBOTT-12P-035-1023181-00

PATIENT
  Age: 33 Year
  Sex: Female

DRUGS (2)
  1. ENANTONE [Suspect]
     Indication: ADENOMYOSIS
     Route: 030
     Dates: start: 20120806
  2. ENANTONE [Suspect]
     Route: 030
     Dates: start: 20120906

REACTIONS (1)
  - Ectopic pregnancy [Unknown]
